FAERS Safety Report 16885055 (Version 1)
Quarter: 2019Q4

REPORT INFORMATION
  Report Type: Spontaneous
  Country: US (occurrence: US)
  Receive Date: 20191004
  Receipt Date: 20191004
  Transmission Date: 20200122
  Serious: No
  Sender: FDA-Public Use
  Company Number: US-ASCEND THERAPEUTICS US, LLC-2075294

PATIENT
  Age: 56 Year
  Sex: Female

DRUGS (4)
  1. DIVIGEL [Concomitant]
     Active Substance: ESTRADIOL
     Dates: end: 2014
  2. PROGESTERONE. [Concomitant]
     Active Substance: PROGESTERONE
     Route: 048
     Dates: start: 2009
  3. ESTROGEL [Suspect]
     Active Substance: ESTRADIOL
     Indication: MENOPAUSE
     Route: 062
     Dates: start: 2014
  4. DEHYDROEPIANDROSTERONE (PRASTERONE) [Concomitant]
     Active Substance: PRASTERONE
     Route: 048

REACTIONS (1)
  - Off label use [None]
